FAERS Safety Report 17728195 (Version 1)
Quarter: 2020Q2

REPORT INFORMATION
  Report Type: Spontaneous
  Country: US (occurrence: US)
  Receive Date: 20200430
  Receipt Date: 20200430
  Transmission Date: 20200714
  Serious: No
  Sender: FDA-Public Use
  Company Number: US-ABBVIE-19K-163-2839210-00

PATIENT
  Sex: Female

DRUGS (1)
  1. CREON [Suspect]
     Active Substance: PANCRELIPASE AMYLASE\PANCRELIPASE LIPASE\PANCRELIPASE PROTEASE
     Indication: PRODUCT USED FOR UNKNOWN INDICATION
     Route: 048

REACTIONS (9)
  - Suffocation feeling [Unknown]
  - Bronchial secretion retention [Unknown]
  - Hypoglycaemia [Unknown]
  - Fatigue [Unknown]
  - Influenza [Unknown]
  - Sinusitis [Unknown]
  - Parainfluenzae virus infection [Unknown]
  - Headache [Unknown]
  - Nasal discharge discolouration [Unknown]
